FAERS Safety Report 7228826-X (Version None)
Quarter: 2011Q1

REPORT INFORMATION
  Report Type: 
  Country: None (occurrence: None)
  Receive Date: 20110117
  Receipt Date: 20110110
  Transmission Date: 20110831
  Serious: Yes (Other)
  Sender: FDA-Public Use
  Company Number: US-ASTRAZENECA-2007UW07509

PATIENT
  Age: 15682 Day
  Sex: Female
  Weight: 122.5 kg

DRUGS (47)
  1. EFFEXOR [Concomitant]
     Dosage: 75 MG TO 150 MG
     Dates: start: 19980415
  2. DEPAKOTE [Concomitant]
     Dates: start: 19960822
  3. WARFARIN [Concomitant]
     Dosage: 5MG-7.5MG
     Dates: start: 20000817
  4. HYDROCOD/APAP [Concomitant]
     Dosage: 5/500 MG
     Dates: start: 19980302
  5. LEVOTHYROXINE [Concomitant]
     Dates: start: 19980131
  6. SULFATRIM-DS [Concomitant]
     Dates: start: 19980202
  7. ULTRAM [Concomitant]
     Dates: start: 19980102
  8. ZYRTEC [Concomitant]
     Dates: start: 20030602
  9. EFFEXOR [Concomitant]
     Dosage: 75 MG TO 100  MG
     Dates: start: 19980131
  10. REMERON [Concomitant]
     Indication: SLEEP APNOEA SYNDROME
     Dosage: 15MG-30MG, EVERY NIGHT AS REQUIRED
     Route: 048
     Dates: start: 20000714
  11. AMBIEN [Concomitant]
     Dates: start: 19951107
  12. PAXIL [Concomitant]
     Dates: start: 19951107
  13. ENTEX SOLUTION [Concomitant]
     Dosage: 75/400 MG
     Dates: start: 19980202
  14. PREMARIN [Concomitant]
     Dosage: 0.625 MG TO 1.25 MG
     Dates: start: 19980121
  15. SEROQUEL [Suspect]
     Dosage: 100MG-600MG, AT NIGHT
     Route: 048
     Dates: start: 19980615
  16. ZYPREXA [Concomitant]
     Dates: start: 20010626, end: 20030618
  17. HRT [Concomitant]
  18. TEGRETOL-XR [Concomitant]
     Dosage: 100MG-200MG
     Dates: start: 19960923
  19. LEVOXYL [Concomitant]
     Dates: start: 19951110
  20. ZELNORM [Concomitant]
     Dates: start: 20030811
  21. SEROQUEL [Suspect]
     Indication: SLEEP DISORDER
     Dosage: 25 MG TO 300 MG
     Route: 048
     Dates: start: 19980615
  22. TEMAZEPAM [Concomitant]
     Dates: start: 19950727
  23. TEMAZEPAM [Concomitant]
     Dates: start: 20021212
  24. LEVBID [Concomitant]
     Dates: start: 19980312
  25. PERIACTIN [Concomitant]
     Dates: start: 20030602
  26. SEROQUEL [Suspect]
     Dosage: 25 MG TO 300 MG
     Route: 048
     Dates: start: 19980615
  27. PROMETHAZINE [Concomitant]
     Dates: start: 20070104
  28. IMITREX [Concomitant]
     Dates: start: 19951005
  29. PROPO-N/APAP [Concomitant]
     Dosage: 100-650 MG
     Dates: start: 20070104
  30. SYNTHROID [Concomitant]
     Dates: start: 19980312
  31. DIOVAN [Concomitant]
     Dates: start: 20030508
  32. HYDROXYZINE [Concomitant]
     Dates: start: 20000301, end: 20021201
  33. PROMETHAZINE [Concomitant]
     Dates: start: 19970416
  34. METFORMIN HCL [Concomitant]
     Route: 048
     Dates: start: 20060426
  35. ZONEGRAN [Concomitant]
     Dates: start: 20030602
  36. EFFEXOR [Concomitant]
     Dates: start: 19980601, end: 20070101
  37. IMITREX [Concomitant]
     Dates: start: 19960830
  38. TRILEPTAL [Concomitant]
     Route: 048
     Dates: start: 20020716
  39. PRINIVIL [Concomitant]
     Dates: start: 19980219
  40. ALPRAZOLAM [Concomitant]
     Dates: start: 20011201
  41. DIAZEPAM [Concomitant]
     Dates: start: 20010801
  42. DIAZEPAM [Concomitant]
     Dates: start: 20011001, end: 20011101
  43. PROMETHAZINE [Concomitant]
     Dates: start: 19980319
  44. LAMICTAL [Concomitant]
     Dates: start: 19970130
  45. IMITREX [Concomitant]
     Dosage: 6 MG STAT DOSE
     Dates: start: 19980427
  46. GABAPENTIN [Concomitant]
     Dates: start: 20060815
  47. PROVENTIL REPETABS [Concomitant]
     Dates: start: 19980513

REACTIONS (14)
  - MENISCUS LESION [None]
  - RASH [None]
  - KNEE OPERATION [None]
  - TYPE 2 DIABETES MELLITUS [None]
  - CHEST PAIN [None]
  - GAIT DISTURBANCE [None]
  - RHINITIS [None]
  - NEUROPATHY PERIPHERAL [None]
  - CONVULSION [None]
  - SKIN DISORDER [None]
  - HYPERTENSION [None]
  - LIGAMENT SPRAIN [None]
  - THROMBOSIS [None]
  - TENDONITIS [None]
